FAERS Safety Report 13406092 (Version 1)
Quarter: 2017Q2

REPORT INFORMATION
  Report Type: Spontaneous
  Country: US (occurrence: US)
  Receive Date: 20170405
  Receipt Date: 20170405
  Transmission Date: 20170830
  Serious: No
  Sender: FDA-Public Use
  Company Number: US-PFIZER INC-2017139874

PATIENT
  Age: 77 Year
  Sex: Male
  Weight: 65.77 kg

DRUGS (5)
  1. LYRICA [Concomitant]
     Active Substance: PREGABALIN
     Indication: DIABETIC NEUROPATHY
     Dosage: 2 DF, DAILY(TWO PILLS AT BEDTIME)
     Route: 048
  2. METFORMIN [Concomitant]
     Active Substance: METFORMIN HYDROCHLORIDE
     Dosage: 500 MG, 2X/DAY(500MG, ONE TABLET BY MOUTH TWICE DAILY WITH MEALS)
     Route: 048
  3. LATANOPROST. [Suspect]
     Active Substance: LATANOPROST
     Indication: VISION BLURRED
     Dosage: SOLUTION, LEFT EYE, ONE DROP AT BEDTIME
  4. ALBUTEROL /00139501/ [Concomitant]
     Active Substance: ALBUTEROL
     Indication: LUNG DISORDER
     Dosage: DOES NOT KNOW DOSE, ONE VIAL OF ALBUTEROL AND POURS IT INTO A MACHINE, TAKES IT 4 OR 5 TIMES A DAY
  5. ALBUTEROL /00139501/ [Concomitant]
     Active Substance: ALBUTEROL
     Indication: DYSPNOEA

REACTIONS (3)
  - Product use in unapproved indication [Unknown]
  - Vision blurred [Not Recovered/Not Resolved]
  - Anger [Unknown]

NARRATIVE: CASE EVENT DATE: 201703
